FAERS Safety Report 22705334 (Version 3)
Quarter: 2023Q4

REPORT INFORMATION
  Report Type: Spontaneous
  Country: US (occurrence: US)
  Receive Date: 20230714
  Receipt Date: 20231020
  Transmission Date: 20240109
  Serious: No
  Sender: FDA-Public Use
  Company Number: US-SA-SAC20230713001338

PATIENT
  Age: 64 Year
  Sex: Male

DRUGS (1)
  1. DUPIXENT [Suspect]
     Active Substance: DUPILUMAB
     Indication: Dermatitis atopic
     Dosage: 300 MG, QOW
     Route: 058

REACTIONS (8)
  - Electrocardiogram abnormal [Unknown]
  - Blister [Unknown]
  - Wound [Unknown]
  - Skin atrophy [Unknown]
  - Eczema [Unknown]
  - Eye irritation [Unknown]
  - Dermatitis atopic [Unknown]
  - Drug ineffective [Unknown]
